FAERS Safety Report 14559853 (Version 1)
Quarter: 2018Q1

REPORT INFORMATION
  Report Type: Spontaneous
  Country: US (occurrence: US)
  Receive Date: 20180220
  Receipt Date: 20180220
  Transmission Date: 20180509
  Serious: Yes (Other)
  Sender: FDA-Public Use
  Company Number: None

PATIENT
  Age: 70 Year
  Sex: Female
  Weight: 60.75 kg

DRUGS (5)
  1. VITAMIN E [Concomitant]
     Active Substance: .ALPHA.-TOCOPHEROL
  2. ICY HOT VANISHING SCENT [Suspect]
     Active Substance: MENTHOL
     Indication: MUSCLE SPASMS
     Dosage: ?          QUANTITY:1 TUBE;?
     Route: 061
     Dates: start: 20180213, end: 20180213
  3. MULTI-VITAMIN [Concomitant]
     Active Substance: .ALPHA.-TOCOPHEROL ACETATE, DL-\ASCORBIC ACID\CYANOCOBALAMIN\FLUORIDE ION\FOLIC ACID\NIACIN\PYRIDOXINE\RIBOFLAVIN\THIAMINE\VITAMIN A\VITAMIN D
  4. PRO AIR INHALER [Concomitant]
  5. CALCIUM [Concomitant]
     Active Substance: CALCIUM

REACTIONS (4)
  - Loss of consciousness [None]
  - Dizziness [None]
  - Nausea [None]
  - Product odour abnormal [None]

NARRATIVE: CASE EVENT DATE: 20180213
